FAERS Safety Report 15050358 (Version 1)
Quarter: 2018Q2

REPORT INFORMATION
  Report Type: Spontaneous
  Country: CL (occurrence: CL)
  Receive Date: 20180622
  Receipt Date: 20180622
  Transmission Date: 20180711
  Serious: Yes (Hospitalization)
  Sender: FDA-Public Use
  Company Number: CL-ABBVIE-18P-034-2393396-00

PATIENT
  Age: 24 Year
  Sex: Male
  Weight: 80 kg

DRUGS (3)
  1. VALCOTE [Suspect]
     Active Substance: VALPROATE SODIUM
     Indication: CONVULSION PROPHYLAXIS
     Route: 048
     Dates: start: 2018
  2. VALCOTE [Suspect]
     Active Substance: VALPROATE SODIUM
     Indication: CONVULSION PROPHYLAXIS
     Route: 048
     Dates: start: 2006
  3. VALCOTE [Suspect]
     Active Substance: VALPROATE SODIUM
     Route: 048
     Dates: start: 2018

REACTIONS (2)
  - Product quality issue [Unknown]
  - Seizure [Recovered/Resolved]

NARRATIVE: CASE EVENT DATE: 20180311
